FAERS Safety Report 19409915 (Version 1)
Quarter: 2021Q2

REPORT INFORMATION
  Report Type: Spontaneous
  Country: US (occurrence: US)
  Receive Date: 20210614
  Receipt Date: 20210614
  Transmission Date: 20210717
  Serious: No
  Sender: FDA-Public Use
  Company Number: US-AMGEN-USASP2021089246

PATIENT
  Age: 70 Year
  Sex: Female

DRUGS (3)
  1. DEXAMETHASONE. [Concomitant]
     Active Substance: DEXAMETHASONE
     Indication: UTERINE CANCER
     Dosage: DAYS ?1, 0, 1, 2 , AND 3
     Dates: start: 2021
  2. TAXOTERE [Concomitant]
     Active Substance: DOCETAXEL
     Indication: UTERINE CANCER
     Dosage: DAY 0
     Dates: start: 2021
  3. NEULASTA [Suspect]
     Active Substance: PEGFILGRASTIM
     Indication: PRODUCT USED FOR UNKNOWN INDICATION
     Dosage: UNK
     Route: 065
     Dates: start: 2021

REACTIONS (5)
  - White blood cell count increased [Unknown]
  - Chest pain [Recovered/Resolved]
  - Fibrin D dimer increased [Unknown]
  - Haemoglobin decreased [Unknown]
  - Red blood cell count decreased [Unknown]

NARRATIVE: CASE EVENT DATE: 20210602
